FAERS Safety Report 23391947 (Version 1)
Quarter: 2024Q1

REPORT INFORMATION
  Report Type: Spontaneous
  Country: US (occurrence: US)
  Receive Date: 20240111
  Receipt Date: 20240111
  Transmission Date: 20240409
  Serious: No
  Sender: FDA-Public Use
  Company Number: US-NAPO PHARMACEUTICALS-2022US005441

PATIENT

DRUGS (2)
  1. MYTESI [Suspect]
     Active Substance: CROFELEMER
     Indication: Gastrointestinal inflammation
     Dosage: 125 MG, BID
     Route: 048
     Dates: start: 20220222
  2. MYTESI [Suspect]
     Active Substance: CROFELEMER
     Indication: Colitis

REACTIONS (2)
  - Product dose omission issue [Not Recovered/Not Resolved]
  - Off label use [Unknown]
